FAERS Safety Report 4723642-2 (Version None)
Quarter: 2005Q3

REPORT INFORMATION
  Report Type: 
  Country: None (occurrence: None)
  Receive Date: 20050722
  Receipt Date: 20050630
  Transmission Date: 20060218
  Serious: Yes (Death, Hospitalization)
  Sender: FDA-Public Use
  Company Number: WSDF_00484

PATIENT
  Sex: Male

DRUGS (3)
  1. WINRHO SDF [Suspect]
     Indication: THROMBOCYTOPENIA
  2. INTERFERON [Concomitant]
  3. PREDNISONE [Concomitant]

REACTIONS (5)
  - HAEMOGLOBIN DECREASED [None]
  - HAEMORRHAGE [None]
  - HEPATIC FAILURE [None]
  - PLATELET COUNT INCREASED [None]
  - RENAL FAILURE [None]
